FAERS Safety Report 18957524 (Version 1)
Quarter: 2021Q1

REPORT INFORMATION
  Report Type: Spontaneous
  Country: US (occurrence: US)
  Receive Date: 20210302
  Receipt Date: 20210302
  Transmission Date: 20210420
  Serious: Yes (Hospitalization)
  Sender: FDA-Public Use
  Company Number: None

PATIENT
  Age: 16 Year
  Sex: Male
  Weight: 68.4 kg

DRUGS (4)
  1. DACARBAZINE. [Suspect]
     Active Substance: DACARBAZINE
     Dates: end: 20210219
  2. SGN?35 (BRENTUXIMAB VEDOTIN) [Concomitant]
     Active Substance: BRENTUXIMAB VEDOTIN
     Dates: end: 20210219
  3. VINBLASTINE SULFATE. [Concomitant]
     Active Substance: VINBLASTINE SULFATE
     Dates: end: 20210219
  4. DOXORUBICIN HYDROCHLORIDE. [Concomitant]
     Active Substance: DOXORUBICIN HYDROCHLORIDE
     Dates: end: 20210219

REACTIONS (3)
  - Pleural effusion [None]
  - Cardiac arrest [None]
  - Respiratory failure [None]

NARRATIVE: CASE EVENT DATE: 20210221
